FAERS Safety Report 16979185 (Version 2)
Quarter: 2019Q4

REPORT INFORMATION
  Report Type: Spontaneous
  Country: US (occurrence: US)
  Receive Date: 20191031
  Receipt Date: 20191218
  Transmission Date: 20200122
  Serious: No
  Sender: FDA-Public Use
  Company Number: US-PFIZER INC-2019467347

PATIENT
  Age: 57 Year
  Sex: Female
  Weight: 49.89 kg

DRUGS (3)
  1. DETROL LA [Suspect]
     Active Substance: TOLTERODINE TARTRATE
     Indication: HYPERTONIC BLADDER
  2. DETROL LA [Suspect]
     Active Substance: TOLTERODINE TARTRATE
     Indication: MICTURITION URGENCY
     Dosage: 10 MG, 1X/DAY
     Dates: start: 2017
  3. PUMPKIN SEED OIL [Concomitant]
     Dosage: UNK
     Dates: start: 201905

REACTIONS (3)
  - Sleep disorder [Unknown]
  - Therapeutic product effect incomplete [Unknown]
  - Intentional product use issue [Unknown]
